FAERS Safety Report 14281201 (Version 1)
Quarter: 2017Q4

REPORT INFORMATION
  Report Type: Spontaneous
  Country: CN (occurrence: CN)
  Receive Date: 20171213
  Receipt Date: 20171213
  Transmission Date: 20180321
  Serious: Yes (Hospitalization)
  Sender: FDA-Public Use
  Company Number: CN-BAXTER-2017BAX041746

PATIENT
  Age: 59 Year
  Sex: Female
  Weight: 68 kg

DRUGS (3)
  1. 0.9% SODIUM CHLORIDE INJECTION [Suspect]
     Active Substance: SODIUM CHLORIDE
     Indication: PATELLA FRACTURE
     Route: 041
     Dates: start: 20170816, end: 20170819
  2. DYNASTAT [Suspect]
     Active Substance: PARECOXIB SODIUM
     Indication: PATELLA FRACTURE
     Route: 041
     Dates: start: 20170816, end: 20170819
  3. SODIUM CHLORIDE. [Suspect]
     Active Substance: SODIUM CHLORIDE
     Indication: PATELLA FRACTURE
     Route: 041
     Dates: start: 20170816, end: 20170819

REACTIONS (4)
  - Angioedema [Recovering/Resolving]
  - Vessel puncture site erythema [Unknown]
  - Peripheral swelling [Recovering/Resolving]
  - Blister [Unknown]

NARRATIVE: CASE EVENT DATE: 20170818
